FAERS Safety Report 9743192 (Version 2)
Quarter: 2013Q4

REPORT INFORMATION
  Report Type: Spontaneous
  Country: US (occurrence: US)
  Receive Date: 20131210
  Receipt Date: 20131210
  Transmission Date: 20140711
  Serious: No
  Sender: FDA-Public Use
  Company Number: US-GILEAD-2009-0024883

PATIENT
  Sex: Female
  Weight: 97.52 kg

DRUGS (25)
  1. SYNTHROID [Concomitant]
  2. NEURONTIN [Concomitant]
  3. TORADOL [Concomitant]
  4. AMBIEN [Concomitant]
  5. VICODIN ES [Concomitant]
  6. VICODIN [Concomitant]
  7. HYDROCODONE-APAP [Concomitant]
  8. ZOLOFT [Concomitant]
  9. PAXIL [Concomitant]
  10. ELAVIL [Concomitant]
  11. XANAX [Concomitant]
  12. COLACE [Concomitant]
  13. NIACIN [Concomitant]
  14. POTASSIUM CHLORIDE [Concomitant]
  15. VITAMIN B-12 [Concomitant]
  16. LETAIRIS [Suspect]
     Indication: PULMONARY ARTERIAL HYPERTENSION
     Route: 048
     Dates: start: 20090119
  17. REVATIO [Concomitant]
  18. COREG [Concomitant]
  19. ZOCOR [Concomitant]
  20. COUMADIN [Concomitant]
  21. ALDACTONE [Concomitant]
  22. BUMEX [Concomitant]
  23. ASPIRIN [Concomitant]
  24. OXYGEN [Concomitant]
  25. PYRIDIUM [Concomitant]

REACTIONS (1)
  - Chest discomfort [Recovered/Resolved]
